FAERS Safety Report 6610435-4 (Version None)
Quarter: 2010Q1

REPORT INFORMATION
  Report Type: 
  Country: None (occurrence: None)
  Receive Date: 20100302
  Receipt Date: 20100216
  Transmission Date: 20100710
  Serious: Yes (Other)
  Sender: FDA-Public Use
  Company Number: US-CELGENEUS-163-21880-10021449

PATIENT
  Age: 65 Year
  Sex: Female

DRUGS (1)
  1. REVLIMID [Suspect]
     Route: 048

REACTIONS (4)
  - BLOOD COUNT ABNORMAL [None]
  - DIARRHOEA [None]
  - GRAFT VERSUS HOST DISEASE [None]
  - RASH ERYTHEMATOUS [None]
